FAERS Safety Report 7969427-5 (Version None)
Quarter: 2011Q4

REPORT INFORMATION
  Report Type: 
  Country: None (occurrence: None)
  Receive Date: 20111212
  Receipt Date: 20111202
  Transmission Date: 20120403
  Serious: Yes (Other)
  Sender: FDA-Public Use
  Company Number: US-BRISTOL-MYERS SQUIBB COMPANY-16201733

PATIENT
  Age: 33 Year
  Sex: Female
  Weight: 93 kg

DRUGS (3)
  1. BLINDED: RITONAVIR [Suspect]
     Indication: HIV INFECTION
     Dosage: TABS
     Route: 048
     Dates: start: 20101020
  2. TENOFOVIR DF + EMTRICITABINE [Suspect]
     Indication: HIV INFECTION
     Dosage: TABS
     Route: 065
     Dates: start: 20101020
  3. ATAZANAVIR [Suspect]
     Indication: HIV INFECTION
     Route: 065
     Dates: start: 20101020

REACTIONS (2)
  - ABORTION SPONTANEOUS [None]
  - PREGNANCY [None]
